FAERS Safety Report 25279299 (Version 1)
Quarter: 2025Q2

REPORT INFORMATION
  Report Type: Spontaneous
  Country: US (occurrence: None)
  Receive Date: 20250507
  Receipt Date: 20250507
  Transmission Date: 20250716
  Serious: No
  Sender: FDA-CTU
  Company Number: None

PATIENT
  Age: 63 Year
  Sex: Female
  Weight: 78.75 kg

DRUGS (1)
  1. CHLORHEXIDINE GLUCONATE [Suspect]
     Active Substance: CHLORHEXIDINE GLUCONATE
     Indication: Preoperative care
     Dosage: 1 BOTTLE TWICE A DAY ORAL
     Route: 048
     Dates: start: 20250408, end: 20250506

REACTIONS (3)
  - Tooth discolouration [None]
  - Product communication issue [None]
  - Physical product label issue [None]

NARRATIVE: CASE EVENT DATE: 20250506
